FAERS Safety Report 14072237 (Version 4)
Quarter: 2021Q4

REPORT INFORMATION
  Report Type: Spontaneous
  Country: US (occurrence: US)
  Receive Date: 20171010
  Receipt Date: 20211225
  Transmission Date: 20220303
  Serious: No
  Sender: FDA-Public Use
  Company Number: US-SA-2017SA176541

PATIENT
  Age: 41 Year
  Sex: Male
  Weight: 108.86 kg

DRUGS (5)
  1. DUPIXENT [Suspect]
     Active Substance: DUPILUMAB
     Indication: Eczema
     Dosage: 600 MG,QOW
     Route: 058
     Dates: start: 20170720
  2. DUPIXENT [Suspect]
     Active Substance: DUPILUMAB
     Indication: Dermatitis atopic
     Dosage: 600 MG,QOW
     Route: 058
     Dates: start: 2017
  3. DUPIXENT [Suspect]
     Active Substance: DUPILUMAB
     Dosage: 300 MG, QOW
  4. PREDNISOLONE [Concomitant]
     Active Substance: PREDNISOLONE
  5. NEPAFENAC [Concomitant]
     Active Substance: NEPAFENAC

REACTIONS (8)
  - Weight increased [Unknown]
  - Coronavirus infection [Unknown]
  - Herpes zoster [Unknown]
  - Neuralgia [Not Recovered/Not Resolved]
  - Eczema [Unknown]
  - Skin fissures [Unknown]
  - Pain of skin [Unknown]
  - Extra dose administered [Unknown]

NARRATIVE: CASE EVENT DATE: 20170101
